FAERS Safety Report 9680002 (Version 2)
Quarter: 2013Q4

REPORT INFORMATION
  Report Type: Spontaneous
  Country: US (occurrence: US)
  Receive Date: 20131110
  Receipt Date: 20131110
  Transmission Date: 20140711
  Serious: Yes (Other)
  Sender: FDA-Public Use
  Company Number: PHEH2013US023246

PATIENT
  Sex: Female

DRUGS (11)
  1. DIOVAN [Suspect]
     Indication: HYPERTENSION
     Dosage: 0.5 DF(80MG), BID
     Route: 048
  2. NEXIUM//ESOMEPRAZOLE MAGNESIUM [Concomitant]
     Dosage: UNK UKN, UNK
  3. SYNTHROID [Concomitant]
     Dosage: UNK UKN, UNK
  4. METFORMIN [Concomitant]
     Dosage: UNK UKN, UNK
  5. VIIBRYD [Concomitant]
     Dosage: UNK UKN, UNK
  6. ASA [Concomitant]
     Indication: PROPHYLAXIS
     Dosage: 81 MG, UNK
  7. GLIPIZDE [Concomitant]
     Dosage: UNK UKN, UNK
  8. CLOPIDOGREL [Concomitant]
     Indication: ANTICOAGULANT THERAPY
     Dosage: UNK UKN, UNK
  9. METOPROLOL [Concomitant]
     Indication: HYPERTENSION
     Dosage: 50 MG, UNK
  10. ZETIA [Concomitant]
     Dosage: 10 MG, UNK
  11. POTASSIUM [Concomitant]
     Dosage: 10 MG, EVERY OTHER DAY

REACTIONS (3)
  - Vascular occlusion [Unknown]
  - Memory impairment [Unknown]
  - Wrong technique in drug usage process [Unknown]
